FAERS Safety Report 7655661-0 (Version None)
Quarter: 2011Q3

REPORT INFORMATION
  Report Type: 
  Country: None (occurrence: None)
  Receive Date: 20110728
  Receipt Date: 20110720
  Transmission Date: 20111222
  Serious: Yes (Life-Threatening, Hospitalization)
  Sender: FDA-Public Use
  Company Number: 2011SP015766

PATIENT
  Age: 24 Year
  Sex: Female
  Weight: 75 kg

DRUGS (2)
  1. IMPLANON [Suspect]
     Indication: CONTRACEPTION
     Dosage: 1 DF;
     Dates: start: 20101123, end: 20110114
  2. IMPLANON [Suspect]
     Indication: CONTRACEPTION

REACTIONS (4)
  - HEPATITIS [None]
  - PRODUCT QUALITY ISSUE [None]
  - PORTAL VEIN THROMBOSIS [None]
  - INCORRECT DOSE ADMINISTERED BY DEVICE [None]
